FAERS Safety Report 5953874-7 (Version None)
Quarter: 2008Q4

REPORT INFORMATION
  Report Type: 
  Country: None (occurrence: None)
  Receive Date: 20081114
  Receipt Date: 20081104
  Transmission Date: 20090506
  Serious: Yes (Other)
  Sender: FDA-Public Use
  Company Number: JP-PFIZER INC-2008084289

PATIENT
  Sex: Female

DRUGS (2)
  1. XALATAN [Suspect]
     Indication: OPEN ANGLE GLAUCOMA
     Route: 031
     Dates: start: 20081002, end: 20081003
  2. CARTEOLOL HYDROCHLORIDE [Concomitant]
     Route: 031
     Dates: start: 20081002, end: 20081003

REACTIONS (1)
  - CHOKING SENSATION [None]
